FAERS Safety Report 20013268 (Version 4)
Quarter: 2022Q1

REPORT INFORMATION
  Report Type: Spontaneous
  Country: US (occurrence: US)
  Receive Date: 20211029
  Receipt Date: 20220105
  Transmission Date: 20220424
  Serious: Yes (Life-Threatening, Hospitalization, Other)
  Sender: FDA-Public Use
  Company Number: US-MLMSERVICE-20211018-3168060-1

PATIENT
  Age: 6 Decade
  Sex: Female

DRUGS (9)
  1. BUPIVACAINE HYDROCHLORIDE [Suspect]
     Active Substance: BUPIVACAINE HYDROCHLORIDE
     Indication: Local anaesthesia
     Dosage: CLINICAL DOSES
     Route: 008
  2. BUPIVACAINE HYDROCHLORIDE [Suspect]
     Active Substance: BUPIVACAINE HYDROCHLORIDE
     Route: 008
  3. LIDOCAINE [Suspect]
     Active Substance: LIDOCAINE
     Indication: Local anaesthesia
     Dosage: SUBMAXIMALLY DOSED
     Route: 065
  4. LIDOCAINE [Suspect]
     Active Substance: LIDOCAINE
     Route: 008
  5. LIDOCAINE [Suspect]
     Active Substance: LIDOCAINE
     Dosage: LOCAL INFILTRATION
     Route: 065
  6. LIDOCAINE [Suspect]
     Active Substance: LIDOCAINE
     Dosage: INCREMENTAL
     Route: 008
  7. LIDOCAINE [Suspect]
     Active Substance: LIDOCAINE
     Route: 061
  8. EPINEPHRINE [Concomitant]
     Active Substance: EPINEPHRINE
     Indication: Product used for unknown indication
     Route: 065
  9. IOHEXOL [Concomitant]
     Active Substance: IOHEXOL
     Indication: Product used for unknown indication
     Dosage: 180 MG IODINE/ ML
     Route: 065

REACTIONS (13)
  - Bundle branch block left [Recovered/Resolved]
  - Hypoxia [Recovered/Resolved]
  - Local anaesthetic systemic toxicity [Recovered/Resolved]
  - Respiratory distress [Recovered/Resolved]
  - Circulatory collapse [Recovered/Resolved]
  - Atrial fibrillation [Recovered/Resolved]
  - Ventricular hypokinesia [Recovered/Resolved]
  - Ejection fraction decreased [Recovered/Resolved]
  - Electrocardiogram QT prolonged [Recovered/Resolved]
  - Tachycardia [Recovered/Resolved]
  - Tachypnoea [Recovered/Resolved]
  - Depression [Recovered/Resolved]
  - Hypertension [Recovered/Resolved]
